FAERS Safety Report 10679435 (Version 1)
Quarter: 2014Q4

REPORT INFORMATION
  Report Type: Spontaneous
  Country: US (occurrence: US)
  Receive Date: 20141229
  Receipt Date: 20141229
  Transmission Date: 20150529
  Serious: No
  Sender: FDA-Public Use
  Company Number: US-ABBVIE-14P-163-1256248-00

PATIENT
  Age: 74 Year
  Sex: Male
  Weight: 93.07 kg

DRUGS (5)
  1. CHLORTHALIDONE. [Interacting]
     Active Substance: CHLORTHALIDONE
     Indication: HYPERTENSION
     Dates: start: 2004, end: 2007
  2. LUPRON DEPOT [Suspect]
     Active Substance: LEUPROLIDE ACETATE
     Indication: PROSTATE CANCER
     Route: 030
     Dates: start: 20140106, end: 20140106
  3. ASPIRIN. [Interacting]
     Active Substance: ASPIRIN
     Indication: CEREBROVASCULAR ACCIDENT PROPHYLAXIS
     Dates: start: 2004
  4. NAPROXEN SODIUM. [Interacting]
     Active Substance: NAPROXEN SODIUM
     Indication: SPINAL OSTEOARTHRITIS
     Dates: start: 2004
  5. CHLORTHALIDONE. [Interacting]
     Active Substance: CHLORTHALIDONE
     Dates: start: 2007

REACTIONS (7)
  - Skin burning sensation [Recovered/Resolved]
  - Pityriasis rosea [Recovered/Resolved]
  - Hot flush [Not Recovered/Not Resolved]
  - Rash erythematous [Recovered/Resolved]
  - Drug interaction [Recovered/Resolved]
  - Rash pruritic [Recovered/Resolved]
  - Rash [Recovered/Resolved]

NARRATIVE: CASE EVENT DATE: 20140106
